FAERS Safety Report 16633054 (Version 1)
Quarter: 2019Q3

REPORT INFORMATION
  Report Type: Spontaneous
  Country: RU (occurrence: RU)
  Receive Date: 20190725
  Receipt Date: 20190725
  Transmission Date: 20191004
  Serious: Yes (Other)
  Sender: FDA-Public Use
  Company Number: RU-ACTELION-A-US2019-193558

PATIENT
  Age: 63 Year
  Sex: Female

DRUGS (1)
  1. VENTAVIS [Suspect]
     Active Substance: ILOPROST
     Indication: PULMONARY ARTERIAL HYPERTENSION
     Dosage: UNK
     Route: 055
     Dates: start: 2019

REACTIONS (5)
  - Metastatic renal cell carcinoma [Unknown]
  - Dizziness [Unknown]
  - Metastases to central nervous system [Unknown]
  - Headache [Unknown]
  - Epistaxis [Unknown]

NARRATIVE: CASE EVENT DATE: 2019
